APPROVED DRUG PRODUCT: CYCLOBENZAPRINE HYDROCHLORIDE
Active Ingredient: CYCLOBENZAPRINE HYDROCHLORIDE
Strength: 15MG
Dosage Form/Route: CAPSULE, EXTENDED RELEASE;ORAL
Application: A207314 | Product #001 | TE Code: AB
Applicant: MACLEODS PHARMACEUTICALS LTD
Approved: Jul 22, 2024 | RLD: No | RS: No | Type: RX